FAERS Safety Report 9455596 (Version 1)
Quarter: 2013Q3

REPORT INFORMATION
  Report Type: Spontaneous
  Country: AU (occurrence: AU)
  Receive Date: 20130813
  Receipt Date: 20130813
  Transmission Date: 20140515
  Serious: Yes (Death, Other)
  Sender: FDA-Public Use
  Company Number: AU-PFIZER INC-2013233191

PATIENT
  Age: 67 Year
  Sex: Female
  Weight: 80 kg

DRUGS (7)
  1. HEPARIN SODIUM [Suspect]
     Dosage: UNK
     Route: 042
     Dates: start: 19960503, end: 19960506
  2. CIPROXIN [Suspect]
     Dosage: 500 MG, 1X/DAY
     Route: 048
     Dates: start: 19960507
  3. LOSEC [Suspect]
     Dosage: 40 MG, 1X/DAY
     Dates: start: 19960506
  4. PREDNISOLONE [Suspect]
     Dosage: UNK
     Route: 042
     Dates: start: 19960425
  5. VANCOMYCIN HYDROCHLORIDE [Suspect]
     Dosage: 2 DF, 1X/DAY
     Route: 042
     Dates: start: 19960429
  6. BRICANYL [Concomitant]
     Dosage: 12 DF, 1X/DAY
  7. PULMICORT [Concomitant]
     Dosage: 4 DF, 1X/DAY

REACTIONS (4)
  - Respiratory failure [Fatal]
  - Haematemesis [Recovered/Resolved with Sequelae]
  - Melaena [Recovered/Resolved with Sequelae]
  - Haematuria [Recovered/Resolved with Sequelae]
